FAERS Safety Report 24185164 (Version 2)
Quarter: 2024Q3

REPORT INFORMATION
  Report Type: Spontaneous
  Country: DE (occurrence: None)
  Receive Date: 20240807
  Receipt Date: 20240809
  Transmission Date: 20241017
  Serious: Yes (Other)
  Sender: ASTRAZENECA
  Company Number: 2024A166937

PATIENT
  Age: 78 Year
  Sex: Male

DRUGS (4)
  1. DAPAGLIFLOZIN [Suspect]
     Active Substance: DAPAGLIFLOZIN
     Indication: Cardiac disorder
     Route: 048
     Dates: start: 202403
  2. DAPAGLIFLOZIN [Suspect]
     Active Substance: DAPAGLIFLOZIN
     Indication: Myocardial infarction
     Route: 048
     Dates: start: 202403
  3. DAPAGLIFLOZIN [Suspect]
     Active Substance: DAPAGLIFLOZIN
     Indication: Type 2 diabetes mellitus
     Route: 048
     Dates: start: 202403
  4. DAPAGLIFLOZIN [Suspect]
     Active Substance: DAPAGLIFLOZIN
     Indication: Nephropathy
     Route: 048
     Dates: start: 202403

REACTIONS (16)
  - Dizziness [Unknown]
  - Glycosylated haemoglobin increased [Unknown]
  - Fall [Not Recovered/Not Resolved]
  - Haemorrhage [Not Recovered/Not Resolved]
  - Contusion [Not Recovered/Not Resolved]
  - Dry mouth [Unknown]
  - Genital infection fungal [Unknown]
  - Erythema [Unknown]
  - Pain [Unknown]
  - Dysphagia [Unknown]
  - Rash [Unknown]
  - Dehydration [Unknown]
  - Thirst decreased [Unknown]
  - Micturition urgency [Unknown]
  - Hyperhidrosis [Unknown]
  - Fungal infection [Unknown]

NARRATIVE: CASE EVENT DATE: 20240601
